FAERS Safety Report 10580583 (Version 1)
Quarter: 2014Q4

REPORT INFORMATION
  Report Type: Report from Study
  Country: US (occurrence: US)
  Receive Date: 20141113
  Receipt Date: 20141113
  Transmission Date: 20150529
  Serious: Yes (Hospitalization)
  Sender: FDA-Public Use
  Company Number: US-AMGEN-USACT2014086475

PATIENT
  Age: 63 Year
  Sex: Female
  Weight: 75.3 kg

DRUGS (1)
  1. ROMIPLOSTIM [Suspect]
     Active Substance: ROMIPLOSTIM
     Indication: BREAST CANCER
     Dosage: 300 MUG, QWK
     Route: 058
     Dates: start: 20140903

REACTIONS (3)
  - Abdominal pain [Unknown]
  - Vomiting [Unknown]
  - Leukocytosis [Unknown]

NARRATIVE: CASE EVENT DATE: 20141101
